FAERS Safety Report 23393687 (Version 1)
Quarter: 2024Q1

REPORT INFORMATION
  Report Type: Spontaneous
  Country: GB (occurrence: GB)
  Receive Date: 20240111
  Receipt Date: 20240111
  Transmission Date: 20240410
  Serious: Yes (Other)
  Sender: FDA-Public Use
  Company Number: None

PATIENT
  Age: 75 Year
  Sex: Female
  Weight: 40 kg

DRUGS (15)
  1. SULFASALAZINE [Suspect]
     Active Substance: SULFASALAZINE
     Indication: Ill-defined disorder
     Dosage: 500 MG
     Dates: start: 20240103
  2. APIXABAN [Concomitant]
     Active Substance: APIXABAN
     Indication: Ill-defined disorder
     Dosage: 1 DF, 2X/DAY
     Dates: start: 20230424
  3. CODEINE PHOSPHATE [Concomitant]
     Active Substance: CODEINE PHOSPHATE
     Indication: Ill-defined disorder
     Dosage: 2 DF AT NIGHT
     Dates: start: 20230411
  4. FOLIC ACID [Concomitant]
     Active Substance: FOLIC ACID
     Indication: Ill-defined disorder
     Dosage: UNK UNK, 1X/DAY
     Dates: start: 20230411
  5. FUROSEMIDE [Concomitant]
     Active Substance: FUROSEMIDE
     Indication: Ill-defined disorder
     Dosage: EACH MORNING, 1X/DAY
     Dates: start: 20230411
  6. FUSIDIC ACID [Concomitant]
     Active Substance: FUSIDIC ACID
     Indication: Ill-defined disorder
     Dosage: APPLY A SMALL AMOUNT, 3X/DAY
     Dates: start: 20231023, end: 20231028
  7. IRON [Concomitant]
     Active Substance: IRON
     Indication: Ill-defined disorder
     Dosage: UNK UNK, 1X/DAY
     Dates: start: 20230411
  8. HYDROXYCHLOROQUINE SULFATE [Concomitant]
     Active Substance: HYDROXYCHLOROQUINE SULFATE
     Indication: Ill-defined disorder
     Dosage: 1 DF ON ALTERNATE DAYS
     Dates: start: 20240103
  9. OMEPRAZOLE [Concomitant]
     Active Substance: OMEPRAZOLE
     Indication: Ill-defined disorder
     Dosage: UNK UNK, 1X/DAY
     Dates: start: 20230411, end: 20231023
  10. ACETAMINOPHEN [Concomitant]
     Active Substance: ACETAMINOPHEN
     Indication: Ill-defined disorder
     Dosage: TAKE ONE TABLET FOUR TIMES DAILY WHEN NECESSARY...    4X/DAY
     Dates: start: 20230411
  11. PIROXICAM [Concomitant]
     Active Substance: PIROXICAM
     Indication: Ill-defined disorder
     Dosage: UNK UNK, 3X/DAY WHEN NECESSARY
     Dates: start: 20230411
  12. SENNA [Concomitant]
     Active Substance: SENNA LEAF\SENNOSIDES\SENNOSIDES A AND B
     Indication: Ill-defined disorder
     Dosage: TAKE 1 OR 2 AT NIGHT
     Dates: start: 20230411, end: 20231023
  13. SEVODYNE [Concomitant]
     Indication: Ill-defined disorder
     Dosage: 1 DF, WEEKLY
     Dates: start: 20230411
  14. CHOLECALCIFEROL [Concomitant]
     Active Substance: CHOLECALCIFEROL
     Indication: Ill-defined disorder
     Dosage: UNK UNK, 2X/DAY
     Dates: start: 20230411
  15. ZOLEDRONIC ACID [Concomitant]
     Active Substance: ZOLEDRONIC ACID
     Indication: Ill-defined disorder
     Dosage: INFUSION TO BE GIVEN AT RHEUMATOLOGY, BHFT
     Dates: start: 20240103

REACTIONS (2)
  - Fatigue [Recovered/Resolved]
  - Decreased appetite [Unknown]

NARRATIVE: CASE EVENT DATE: 20240101
